FAERS Safety Report 13740615 (Version 1)
Quarter: 2017Q3

REPORT INFORMATION
  Report Type: Spontaneous
  Country: US (occurrence: US)
  Receive Date: 20170710
  Receipt Date: 20170710
  Transmission Date: 20171127
  Serious: Yes (Other)
  Sender: FDA-Public Use
  Company Number: None

PATIENT
  Age: 82 Year
  Sex: Female
  Weight: 94 kg

DRUGS (7)
  1. METOPROLOL TARTRATE. [Concomitant]
     Active Substance: METOPROLOL TARTRATE
  2. DIGOXIN. [Concomitant]
     Active Substance: DIGOXIN
  3. TARCEVA [Suspect]
     Active Substance: ERLOTINIB HYDROCHLORIDE
     Indication: LUNG NEOPLASM MALIGNANT
     Dosage: ?          OTHER DOSE:MG;?
     Route: 048
     Dates: start: 20161130, end: 20170710
  4. FUROSEMIDE. [Concomitant]
     Active Substance: FUROSEMIDE
  5. FISH OIL [Concomitant]
     Active Substance: FISH OIL
  6. POTASSIUM CL [Concomitant]
     Active Substance: POTASSIUM CHLORIDE
  7. TAMOXIFEN [Concomitant]
     Active Substance: TAMOXIFEN

REACTIONS (1)
  - Disease progression [None]

NARRATIVE: CASE EVENT DATE: 20170710
